FAERS Safety Report 9740416 (Version 1)
Quarter: 2013Q4

REPORT INFORMATION
  Report Type: Report from Study
  Country: JP (occurrence: JP)
  Receive Date: 20131209
  Receipt Date: 20131209
  Transmission Date: 20140711
  Serious: Yes (Death, Other)
  Sender: FDA-Public Use
  Company Number: JP-TAKEDA-2013TJP003440

PATIENT
  Age: 86 Year
  Sex: Male

DRUGS (6)
  1. LANSOPRAZOLE [Suspect]
     Indication: PROPHYLAXIS AGAINST GASTROINTESTINAL ULCER
     Dosage: 15 MG, QD
     Route: 048
     Dates: start: 20110303, end: 20110715
  2. BLOPRESS [Concomitant]
     Dosage: 8 MG, 1DAYS
     Route: 048
  3. BAYASPIRIN [Concomitant]
     Indication: THROMBOSIS PROPHYLAXIS
     Dosage: 100 MG, 1DAYS
     Route: 048
     Dates: start: 20110303, end: 20110715
  4. AMLODIN OD [Concomitant]
     Dosage: 10 MG, 1DAYS
     Route: 048
  5. CRESTOR [Concomitant]
     Dosage: 2.5 MG, 1DAYS
     Route: 048
  6. LYRICA [Concomitant]
     Dosage: 25 MG, 1DAYS
     Route: 048

REACTIONS (1)
  - Lung neoplasm malignant [Fatal]
